FAERS Safety Report 7888539-8 (Version None)
Quarter: 2011Q4

REPORT INFORMATION
  Report Type: 
  Country: None (occurrence: None)
  Receive Date: 20111103
  Receipt Date: 20111028
  Transmission Date: 20120403
  Serious: Yes (Other)
  Sender: FDA-Public Use
  Company Number: PHHY2011DE88660

PATIENT
  Sex: Male

DRUGS (3)
  1. ZOPICLON [Concomitant]
     Indication: INSOMNIA
     Dosage: ON DEMAND 3.75 TO 7.5 MG
     Route: 048
  2. GILENYA [Suspect]
     Indication: MULTIPLE SCLEROSIS
     Dosage: 0.5 MG, QD
     Route: 048
     Dates: start: 20110701, end: 20110908
  3. BACLOFEN [Concomitant]
     Indication: MUSCLE SPASTICITY
     Dosage: 5 TO 10 MG DAILY
     Route: 048

REACTIONS (3)
  - RASH [None]
  - DYSPNOEA [None]
  - ANAPHYLACTIC REACTION [None]
